FAERS Safety Report 9557450 (Version 5)
Quarter: 2014Q1

REPORT INFORMATION
  Report Type: Report from Study
  Country: PL (occurrence: PL)
  Receive Date: 20130926
  Receipt Date: 20140129
  Transmission Date: 20141002
  Serious: Yes (Hospitalization)
  Sender: FDA-Public Use
  Company Number: PL-009507513-1309POL010709

PATIENT
  Age: 71 Year
  Sex: Male
  Weight: 106 kg

DRUGS (7)
  1. SITAGLIPTIN PHOSPHATE [Suspect]
     Indication: TYPE 2 DIABETES MELLITUS
     Dosage: 100 MG, QD, ONCE DAILY IN THE MORNING
     Route: 048
     Dates: start: 20120327
  2. BISOCARD [Concomitant]
     Indication: HYPERTENSION
     Dosage: DAILY 2.5 MG
     Dates: start: 20110701
  3. AVAMINA [Concomitant]
     Indication: TYPE 2 DIABETES MELLITUS
     Dosage: DAILY 1850 MG
     Dates: start: 2008
  4. ATORIS [Concomitant]
     Indication: HYPERCHOLESTEROLAEMIA
     Dosage: DAILY 20 MG
     Dates: start: 2008
  5. ASPIRIN [Concomitant]
     Indication: MYOCARDIAL ISCHAEMIA
     Dosage: DAILY 32.5 MG
     Dates: start: 2008
  6. DOXAR [Concomitant]
     Indication: BENIGN PROSTATIC HYPERPLASIA
     Dosage: DAILY 1 MG
     Dates: start: 2011
  7. BETASERC [Concomitant]
     Indication: ARTERIOSCLEROSIS
     Dosage: DAILY 24 MG
     Dates: start: 2011

REACTIONS (2)
  - Large intestine polyp [Recovered/Resolved]
  - Gastric polyps [Recovered/Resolved]
